FAERS Safety Report 14374055 (Version 2)
Quarter: 2018Q4

REPORT INFORMATION
  Report Type: Spontaneous
  Country: IN (occurrence: IN)
  Receive Date: 20180111
  Receipt Date: 20181011
  Transmission Date: 20190204
  Serious: Yes (Other)
  Sender: FDA-Public Use
  Company Number: IN-CIPLA LTD.-2018IN00123

PATIENT

DRUGS (5)
  1. CARBOPLATIN. [Suspect]
     Active Substance: CARBOPLATIN
     Dosage: UNK, 3 CYCLES
     Route: 065
  2. PACLITAXEL. [Suspect]
     Active Substance: PACLITAXEL
     Indication: LUNG ADENOCARCINOMA
     Dosage: UNK, WEEKLY FOR 4 CONSECUTIVE WEEKS
     Route: 065
  3. GEMCITABINE [Suspect]
     Active Substance: GEMCITABINE\GEMCITABINE HYDROCHLORIDE
     Indication: LUNG ADENOCARCINOMA
     Dosage: UNK, 3 CYCLES
     Route: 065
  4. PEMETREXED. [Suspect]
     Active Substance: PEMETREXED
     Indication: LUNG ADENOCARCINOMA
     Dosage: UNK, 1 CYCLE
     Route: 065
  5. CARBOPLATIN. [Suspect]
     Active Substance: CARBOPLATIN
     Indication: LUNG ADENOCARCINOMA
     Dosage: UNK, 1 CYCLE
     Route: 065

REACTIONS (8)
  - Haematotoxicity [Unknown]
  - Hyponatraemia [Unknown]
  - Metastases to bone [Recovering/Resolving]
  - Anaemia [Unknown]
  - Malignant neoplasm progression [Recovering/Resolving]
  - Metastases to central nervous system [Recovering/Resolving]
  - Renal impairment [Unknown]
  - Performance status decreased [Recovering/Resolving]
